FAERS Safety Report 5638603-9 (Version None)
Quarter: 2008Q1

REPORT INFORMATION
  Report Type: 
  Country: None (occurrence: None)
  Receive Date: 20080226
  Receipt Date: 20070730
  Transmission Date: 20080703
  Serious: Yes (Disabling)
  Sender: FDA-Public Use
  Company Number: A0660326A

PATIENT
  Age: 38 Year
  Sex: Female
  Weight: 68.2 kg

DRUGS (1)
  1. IMITREX [Suspect]
     Indication: MIGRAINE
     Dosage: 6MG AS REQUIRED
     Route: 058
     Dates: start: 20070624

REACTIONS (6)
  - BALANCE DISORDER [None]
  - DEAFNESS [None]
  - DEAFNESS UNILATERAL [None]
  - DIZZINESS [None]
  - IMPAIRED DRIVING ABILITY [None]
  - TINNITUS [None]
